FAERS Safety Report 18566442 (Version 2)
Quarter: 2020Q4

REPORT INFORMATION
  Report Type: Spontaneous
  Country: US (occurrence: US)
  Receive Date: 20201201
  Receipt Date: 20201229
  Transmission Date: 20210114
  Serious: No
  Sender: FDA-Public Use
  Company Number: US-ASTRAZENECA-2020SF51784

PATIENT
  Age: 26574 Day
  Sex: Female
  Weight: 78 kg

DRUGS (2)
  1. BYDUREON BCISE [Suspect]
     Active Substance: EXENATIDE
     Indication: ILL-DEFINED DISORDER
     Route: 058
     Dates: start: 201912
  2. LANTUS SOLOSTAR [Concomitant]
     Active Substance: INSULIN GLARGINE
     Dosage: 37 TO 41 UNITS SLIDING SCALE BY INJECTION

REACTIONS (5)
  - Wrong technique in device usage process [Not Recovered/Not Resolved]
  - Device mechanical issue [Unknown]
  - Intentional device misuse [Recovered/Resolved]
  - Incorrect dose administered by device [Recovered/Resolved]
  - Paraesthesia [Not Recovered/Not Resolved]

NARRATIVE: CASE EVENT DATE: 20201110
